FAERS Safety Report 9745666 (Version 1)
Quarter: 2013Q4

REPORT INFORMATION
  Report Type: Spontaneous
  Country: JP (occurrence: None)
  Receive Date: 20131204
  Receipt Date: 20131204
  Transmission Date: 20140711
  Serious: No
  Sender: FDA-Public Use
  Company Number: JP-2013-4034

PATIENT
  Age: 62 Year
  Sex: Male

DRUGS (2)
  1. NAVELBINE [Suspect]
     Indication: LUNG ADENOCARCINOMA
     Route: 042
  2. CISPLATIN (CISPLATIN) [Suspect]
     Route: 042

REACTIONS (2)
  - Sepsis [None]
  - Cholecystitis acute [None]
